FAERS Safety Report 9411224 (Version 3)
Quarter: 2014Q1

REPORT INFORMATION
  Report Type: Report from Study
  Country: GB (occurrence: GB)
  Receive Date: 20130722
  Receipt Date: 20140115
  Transmission Date: 20141002
  Serious: Yes (Hospitalization)
  Sender: FDA-Public Use
  Company Number: GB-AMGEN-GBRCT2013050729

PATIENT
  Age: 47 Year
  Sex: Female
  Weight: 79.8 kg

DRUGS (4)
  1. ETANERCEPT [Suspect]
     Indication: PSORIATIC ARTHROPATHY
     Dosage: 50 MG, QWK
     Route: 058
     Dates: start: 20090911, end: 20090918
  2. METHOTREXATE SODIUM [Concomitant]
     Indication: PSORIATIC ARTHROPATHY
     Dosage: 15 MG, WEEKLY
     Route: 048
     Dates: start: 20090422, end: 20090920
  3. FOLIC ACID [Concomitant]
     Indication: PSORIATIC ARTHROPATHY
     Dosage: 5 MG, 1X/DAY
     Route: 048
     Dates: start: 2009
  4. ERYTHROMYCIN [Concomitant]
     Indication: INFECTION
     Dosage: 500 MG, 4X/DAY
     Route: 048
     Dates: start: 20090611, end: 20090618

REACTIONS (1)
  - Pneumonia [Recovered/Resolved]
